FAERS Safety Report 6329689-7 (Version None)
Quarter: 2009Q3

REPORT INFORMATION
  Report Type: 
  Country: None (occurrence: None)
  Receive Date: 20090826
  Receipt Date: 20090813
  Transmission Date: 20100115
  Serious: Yes (Other)
  Sender: FDA-Public Use
  Company Number: NZ-MYLANLABS-2009S1014400

PATIENT
  Sex: Male

DRUGS (1)
  1. ROPINIROLE [Suspect]
     Indication: PARKINSON'S DISEASE
     Route: 048
     Dates: start: 20090613

REACTIONS (4)
  - ABASIA [None]
  - DRUG INEFFECTIVE [None]
  - PARKINSON'S DISEASE [None]
  - PRODUCT SUBSTITUTION ISSUE [None]
